FAERS Safety Report 25226918 (Version 1)
Quarter: 2025Q2

REPORT INFORMATION
  Report Type: Spontaneous
  Country: US (occurrence: US)
  Receive Date: 20250422
  Receipt Date: 20250422
  Transmission Date: 20250716
  Serious: No
  Sender: PFIZER
  Company Number: US-PFIZER INC-202500084126

PATIENT
  Age: 75 Year
  Sex: Male

DRUGS (11)
  1. LITFULO [Suspect]
     Active Substance: RITLECITINIB TOSYLATE
     Dosage: 50 MG, 1X/DAY (QD)
     Dates: start: 20240723
  2. XARELTO [Concomitant]
     Active Substance: RIVAROXABAN
  3. MORNIFLUMATE [Concomitant]
     Active Substance: MORNIFLUMATE
  4. FINASTERIDE [Concomitant]
     Active Substance: FINASTERIDE
  5. ANASTROZOLE [Concomitant]
     Active Substance: ANASTROZOLE
  6. CYMBALTA [Concomitant]
     Active Substance: DULOXETINE HYDROCHLORIDE
  7. TRIMEBUTINE MALEATE [Concomitant]
     Active Substance: TRIMEBUTINE MALEATE
  8. PROSCAR [Concomitant]
     Active Substance: FINASTERIDE
  9. LOSARTAN POTASSIUM [Concomitant]
     Active Substance: LOSARTAN POTASSIUM
  10. AMLODIPINE BESYLATE [Concomitant]
     Active Substance: AMLODIPINE BESYLATE
  11. CLOMIPRAMINE HYDROCHLORIDE [Concomitant]
     Active Substance: CLOMIPRAMINE HYDROCHLORIDE

REACTIONS (1)
  - Therapeutic product effect decreased [Not Recovered/Not Resolved]

NARRATIVE: CASE EVENT DATE: 20250301
